FAERS Safety Report 5528662-6 (Version None)
Quarter: 2007Q4

REPORT INFORMATION
  Report Type: 
  Country: None (occurrence: None)
  Receive Date: 20071129
  Receipt Date: 20071120
  Transmission Date: 20080405
  Serious: Yes (Other)
  Sender: FDA-Public Use
  Company Number: PHEH2007US14466

PATIENT
  Sex: Female

DRUGS (1)
  1. DIOVAN HCT [Suspect]
     Indication: HYPERTENSION
     Dosage: 160MG VAL/12.5MG HCT, QD
     Dates: start: 20040101, end: 20070901

REACTIONS (3)
  - DIZZINESS [None]
  - LOSS OF CONSCIOUSNESS [None]
  - PHOTOSENSITIVITY REACTION [None]
